FAERS Safety Report 6363244-8 (Version None)
Quarter: 2009Q3

REPORT INFORMATION
  Report Type: 
  Country: None (occurrence: None)
  Receive Date: 20090919
  Receipt Date: 20090619
  Transmission Date: 20100115
  Serious: No
  Sender: FDA-Public Use
  Company Number: US-ABBOTT-09P-163-0581103-00

PATIENT
  Sex: Female
  Weight: 136.2 kg

DRUGS (3)
  1. HUMIRA [Suspect]
     Indication: ARTHRITIS
     Route: 058
     Dates: start: 20080101
  2. HUMIRA [Suspect]
  3. BLOOD PRESSURE MEDS [Concomitant]
     Indication: DRUG USE FOR UNKNOWN INDICATION

REACTIONS (7)
  - ARTHROPOD BITE [None]
  - DEHYDRATION [None]
  - GASTROENTERITIS VIRAL [None]
  - GENERALISED OEDEMA [None]
  - LOCALISED INFECTION [None]
  - PAIN [None]
  - VOMITING [None]
